FAERS Safety Report 13249769 (Version 2)
Quarter: 2019Q1

REPORT INFORMATION
  Report Type: Spontaneous
  Country: US (occurrence: US)
  Receive Date: 20170218
  Receipt Date: 20190115
  Transmission Date: 20190417
  Serious: No
  Sender: FDA-Public Use
  Company Number: US-ALLERGAN-1674121US

PATIENT
  Age: 59 Year
  Sex: Female

DRUGS (9)
  1. DULOXETINE. [Concomitant]
     Active Substance: DULOXETINE
     Indication: DEPRESSION
     Dosage: 60 MG, QD
     Route: 065
  2. RESTASIS [Suspect]
     Active Substance: CYCLOSPORINE
     Indication: EYE PRURITUS
     Dosage: UNK
     Route: 047
  3. IBUPROFEN. [Concomitant]
     Active Substance: IBUPROFEN
     Dosage: UNK
     Route: 065
  4. RESTASIS [Suspect]
     Active Substance: CYCLOSPORINE
     Indication: MADAROSIS
  5. RESTASIS [Suspect]
     Active Substance: CYCLOSPORINE
     Indication: SWELLING OF EYELID
  6. RESTASIS [Suspect]
     Active Substance: CYCLOSPORINE
     Indication: ERYTHEMA OF EYELID
  7. QUETIAPINE. [Concomitant]
     Active Substance: QUETIAPINE
     Indication: DEPRESSION
     Dosage: 50 MG, QPM
     Route: 065
  8. RESTASIS [Suspect]
     Active Substance: CYCLOSPORINE
     Indication: DRY EYE
     Dosage: 2 GTT, BID
     Route: 047
     Dates: start: 2015, end: 201610
  9. CLONAZEPAM. [Concomitant]
     Active Substance: CLONAZEPAM
     Indication: DEPRESSION
     Dosage: 1 MG, PRN, UPTO 4 TIMES A DAY
     Route: 065

REACTIONS (4)
  - Product dose omission [Unknown]
  - Eye irritation [Not Recovered/Not Resolved]
  - Intentional product use issue [Unknown]
  - Eye discharge [Unknown]

NARRATIVE: CASE EVENT DATE: 201612
